FAERS Safety Report 10258429 (Version 3)
Quarter: 2014Q3

REPORT INFORMATION
  Report Type: Spontaneous
  Country: US (occurrence: None)
  Receive Date: 20140623
  Receipt Date: 20140722
  Transmission Date: 20150326
  Serious: Yes (Other)
  Sender: FDA-Public Use
  Company Number: US-000772

PATIENT
  Age: 73 Year
  Sex: Female

DRUGS (8)
  1. SOLUTIONS FOR PARENTERAL NUTRITION [Concomitant]
     Active Substance: AMINO ACIDS\DEXTROSE\ELECTROLYTES NOS
  2. REQUIP [Concomitant]
     Active Substance: ROPINIROLE HYDROCHLORIDE
  3. RISPERDAL [Concomitant]
     Active Substance: RISPERIDONE
  4. ACYCLOVIR. [Concomitant]
     Active Substance: ACYCLOVIR
  5. PROLIA [Concomitant]
     Active Substance: DENOSUMAB
  6. GATTEX [Suspect]
     Active Substance: TEDUGLUTIDE\WATER
     Indication: SHORT-BOWEL SYNDROME
     Route: 058
     Dates: start: 20130625, end: 20140217
  7. ASPIRIN. [Concomitant]
     Active Substance: ASPIRIN
  8. MULTIVITAMINS [Concomitant]
     Active Substance: VITAMINS

REACTIONS (5)
  - Weight increased [None]
  - Lipase increased [None]
  - Amylase increased [None]
  - Blood phosphorus increased [None]
  - VIIth nerve paralysis [None]

NARRATIVE: CASE EVENT DATE: 201306
